FAERS Safety Report 12279504 (Version 1)
Quarter: 2016Q2

REPORT INFORMATION
  Report Type: Spontaneous
  Country: US (occurrence: US)
  Receive Date: 20160418
  Receipt Date: 20160418
  Transmission Date: 20160815
  Serious: No
  Sender: FDA-Public Use
  Company Number: US-OTSUKA-2016_005988

PATIENT
  Sex: Female

DRUGS (2)
  1. REXULTI [Suspect]
     Active Substance: BREXPIPRAZOLE
     Indication: PRODUCT USED FOR UNKNOWN INDICATION
     Dosage: 0.5 MG, QD
     Route: 048
  2. REXULTI [Suspect]
     Active Substance: BREXPIPRAZOLE
     Dosage: 1 MG, QD
     Route: 065

REACTIONS (5)
  - Neuropathy peripheral [Recovered/Resolved]
  - Condition aggravated [Recovered/Resolved]
  - Memory impairment [Not Recovered/Not Resolved]
  - Urinary incontinence [Recovered/Resolved]
  - Constipation [Recovered/Resolved]
